FAERS Safety Report 23856788 (Version 1)
Quarter: 2024Q2

REPORT INFORMATION
  Report Type: Spontaneous
  Country: AU (occurrence: AU)
  Receive Date: 20240515
  Receipt Date: 20240515
  Transmission Date: 20240716
  Serious: Yes (Hospitalization)
  Sender: FDA-Public Use
  Company Number: AU-GLAXOSMITHKLINE-AU2024APC058290

PATIENT

DRUGS (1)
  1. VENTOLIN [Suspect]
     Active Substance: ALBUTEROL SULFATE
     Indication: Product used for unknown indication
     Dosage: UNK
     Dates: start: 20231114

REACTIONS (3)
  - Asthma [Recovered/Resolved]
  - Treatment delayed [Unknown]
  - Device occlusion [Unknown]

NARRATIVE: CASE EVENT DATE: 20231114
